FAERS Safety Report 10191407 (Version 1)
Quarter: 2014Q2

REPORT INFORMATION
  Report Type: Spontaneous
  Country: US (occurrence: US)
  Receive Date: 20140523
  Receipt Date: 20140523
  Transmission Date: 20141212
  Serious: No
  Sender: FDA-Public Use
  Company Number: US-PFIZER INC-2014137668

PATIENT
  Sex: 0

DRUGS (2)
  1. ADVIL [Suspect]
     Indication: JOINT SWELLING
     Dosage: UNK
  2. ADVIL [Suspect]
     Indication: ARTHRALGIA

REACTIONS (1)
  - Drug ineffective [Unknown]
